FAERS Safety Report 8836040 (Version 2)
Quarter: 2013Q2

REPORT INFORMATION
  Report Type: Spontaneous
  Country: US (occurrence: US)
  Receive Date: 20121011
  Receipt Date: 20130428
  Transmission Date: 20140414
  Serious: No
  Sender: FDA-Public Use
  Company Number: US-009507513-1210USA000498

PATIENT
  Age: 78 Year
  Sex: Male

DRUGS (1)
  1. COSOPT PF [Suspect]
     Indication: GLAUCOMA
     Dosage: 2%-0.5% 1 STD PKG OF 60
     Route: 031
     Dates: start: 20120925

REACTIONS (3)
  - Ocular discomfort [Recovered/Resolved]
  - Product quality issue [Unknown]
  - Incorrect dose administered [Unknown]
